FAERS Safety Report 21255111 (Version 3)
Quarter: 2022Q4

REPORT INFORMATION
  Report Type: Spontaneous
  Country: US (occurrence: US)
  Receive Date: 20220825
  Receipt Date: 20221012
  Transmission Date: 20230113
  Serious: Yes (Other)
  Sender: FDA-Public Use
  Company Number: US-JNJFOC-20220849065

PATIENT
  Sex: Female
  Weight: 90.9 kg

DRUGS (3)
  1. OPSUMIT [Suspect]
     Active Substance: MACITENTAN
     Indication: Product used for unknown indication
     Route: 048
  2. UPTRAVI [Suspect]
     Active Substance: SELEXIPAG
     Indication: Pulmonary hypertension
     Route: 048
  3. TADALAFIL [Concomitant]
     Active Substance: TADALAFIL

REACTIONS (7)
  - Neuropathy peripheral [Unknown]
  - Scleroderma [Unknown]
  - Pain in extremity [Unknown]
  - Fibromyalgia [Unknown]
  - Skin discolouration [Unknown]
  - Skin tightness [Unknown]
  - Hypersomnia [Unknown]
